FAERS Safety Report 8384891-8 (Version None)
Quarter: 2012Q2

REPORT INFORMATION
  Report Type: 
  Country: None (occurrence: None)
  Receive Date: 20120524
  Receipt Date: 20120406
  Transmission Date: 20120825
  Serious: No
  Sender: FDA-Public Use
  Company Number: US-PFIZER INC-2012073481

PATIENT
  Sex: Female

DRUGS (12)
  1. NITROGLYCERIN [Concomitant]
     Dosage: 0.4 MG UNDER THE TOUNGE MAY REPEAT EVERY 5 MINUTES. MAXIMUM 3 DOSES IN 15 MINS
     Route: 060
  2. CITALOPRAM HYDROBROMIDE [Concomitant]
     Dosage: 40 MG, 1X/DAY
     Route: 048
  3. SIMVASTATIN [Concomitant]
     Dosage: 40 MG, (1 TAB BY MOUTH AT BEDTIME)
     Route: 048
  4. XALATAN [Suspect]
     Indication: EYE DISORDER
     Dosage: 1 DROP(S) TO AFFECTED EYE(S) EACH EVENING
     Route: 047
  5. COZAAR [Concomitant]
     Dosage: 50 MG, 1X/DAY
     Route: 048
  6. LEVOTHROID [Concomitant]
     Dosage: 0.125 MG, 1X/DAY
     Route: 048
  7. STARLIX [Concomitant]
     Dosage: 60 MG, 3X/DAY
     Route: 048
  8. LYRICA [Suspect]
     Dosage: 150 MG, 2X/DAY
     Route: 048
  9. NEXIUM [Concomitant]
     Dosage: 40 MG, 1X/DAY
     Route: 048
  10. XANAX [Suspect]
     Dosage: EVERY HOUR AT AN UNKNOWN DOSE
  11. EVISTA [Concomitant]
     Dosage: 60 MG, 1X/DAY
     Route: 048
  12. PLAVIX [Concomitant]
     Dosage: 75 MG, 1X/DAY
     Route: 048

REACTIONS (1)
  - NO ADVERSE EVENT [None]
